FAERS Safety Report 9802919 (Version 1)
Quarter: 2014Q1

REPORT INFORMATION
  Report Type: Spontaneous
  Country: US (occurrence: None)
  Receive Date: 20140106
  Receipt Date: 20140106
  Transmission Date: 20141002
  Serious: Yes (Disabling)
  Sender: FDA-Public Use
  Company Number: None

PATIENT
  Age: 11 Year
  Sex: Female

DRUGS (1)
  1. HUMIRA [Suspect]
     Indication: COLITIS ULCERATIVE
     Dosage: 4 INJECTIONS THEN 2 INJECTIONS EVERY 2 WEEKS INTO THE MUSCLE
     Route: 030
     Dates: start: 20131031, end: 20131118

REACTIONS (2)
  - Anxiety [None]
  - Depression [None]
